FAERS Safety Report 4354834-2 (Version None)
Quarter: 2004Q2

REPORT INFORMATION
  Report Type: 
  Country: None (occurrence: None)
  Receive Date: 20040507
  Receipt Date: 20040421
  Transmission Date: 20050107
  Serious: Yes (Hospitalization, Other)
  Sender: FDA-Public Use
  Company Number: US-GLAXOSMITHKLINE-A0507922A

PATIENT
  Age: 27 Year
  Sex: Female
  Weight: 59.1 kg

DRUGS (2)
  1. WELLBUTRIN [Suspect]
     Dosage: 150MG SEE DOSAGE TEXT
     Route: 048
     Dates: start: 20040323, end: 20040329
  2. ORAL CONTRACEPTIVES [Concomitant]

REACTIONS (4)
  - GRAND MAL CONVULSION [None]
  - MEDICATION ERROR [None]
  - TONGUE BITING [None]
  - VOMITING [None]
